FAERS Safety Report 5889801-0 (Version None)
Quarter: 2008Q3

REPORT INFORMATION
  Report Type: 
  Country: None (occurrence: None)
  Receive Date: 20080919
  Receipt Date: 20080909
  Transmission Date: 20090109
  Serious: Yes (Hospitalization)
  Sender: FDA-Public Use
  Company Number: JP-BRISTOL-MYERS SQUIBB COMPANY-14328900

PATIENT
  Age: 62 Year
  Sex: Male
  Weight: 66 kg

DRUGS (9)
  1. ABATACEPT [Suspect]
     Indication: RHEUMATOID ARTHRITIS
     Route: 041
     Dates: start: 20070419
  2. RHEUMATREX [Concomitant]
     Indication: RHEUMATOID ARTHRITIS
     Dosage: CAPS
     Route: 048
  3. PREDONINE [Concomitant]
     Indication: RHEUMATOID ARTHRITIS
     Dosage: TAB
     Route: 048
  4. NABOAL [Concomitant]
     Indication: RHEUMATOID ARTHRITIS
     Dosage: SRC
     Route: 048
  5. OPALMON [Concomitant]
     Indication: RHEUMATOID ARTHRITIS
     Dosage: TABS
     Route: 048
     Dates: start: 20070607
  6. JUVELA NICOTINATE [Concomitant]
     Indication: RHEUMATOID ARTHRITIS
     Dosage: CAPS
     Route: 048
     Dates: start: 20070607
  7. VITAMEDIN [Concomitant]
     Indication: RHEUMATOID ARTHRITIS
     Dosage: CAPS
     Route: 048
     Dates: start: 20070419
  8. CYANOCOBALAMIN [Concomitant]
     Indication: RHEUMATOID ARTHRITIS
     Dosage: TAB
     Route: 048
     Dates: start: 20070419
  9. ALOSENN [Concomitant]
     Indication: CONSTIPATION
     Dosage: GRA
     Route: 048
     Dates: start: 20080808

REACTIONS (1)
  - VOLVULUS [None]
